FAERS Safety Report 12445055 (Version 4)
Quarter: 2016Q4

REPORT INFORMATION
  Report Type: Report from Study
  Country: US (occurrence: US)
  Receive Date: 20160607
  Receipt Date: 20161222
  Transmission Date: 20170207
  Serious: Yes (Other)
  Sender: FDA-Public Use
  Company Number: US-GLAXOSMITHKLINE-US2016GSK080855

PATIENT
  Sex: Female
  Weight: 78.91 kg

DRUGS (11)
  1. LEXAPRO [Concomitant]
     Active Substance: ESCITALOPRAM OXALATE
  2. OXYCODONE [Concomitant]
     Active Substance: OXYCODONE
  3. ASPIRIN. [Concomitant]
     Active Substance: ASPIRIN
  4. CALCIUM [Concomitant]
     Active Substance: CALCIUM
  5. ZYRTEC [Concomitant]
     Active Substance: CETIRIZINE HYDROCHLORIDE
  6. PREDNISONE. [Concomitant]
     Active Substance: PREDNISONE
     Indication: SYSTEMIC LUPUS ERYTHEMATOSUS
     Dosage: 10 MG, UNK
     Dates: start: 20141020
  7. IRON [Concomitant]
     Active Substance: IRON
  8. VITAMIN B6 [Concomitant]
     Active Substance: PYRIDOXINE HYDROCHLORIDE
  9. BELIMUMAB [Suspect]
     Active Substance: BELIMUMAB
     Indication: SYSTEMIC LUPUS ERYTHEMATOSUS
     Dosage: UNK, U
     Route: 042
  10. FISH OIL [Concomitant]
     Active Substance: FISH OIL
  11. ZANAFLEX [Concomitant]
     Active Substance: TIZANIDINE HYDROCHLORIDE

REACTIONS (16)
  - Systemic lupus erythematosus [Not Recovered/Not Resolved]
  - Intestinal resection [Unknown]
  - Pancreatectomy [Unknown]
  - Back pain [Not Recovered/Not Resolved]
  - Breech delivery [Recovered/Resolved]
  - Fibromyalgia [Not Recovered/Not Resolved]
  - Cancer surgery [Unknown]
  - Live birth [Unknown]
  - Hepatic cancer [Unknown]
  - Hepatectomy [Unknown]
  - Connective tissue disorder [Not Recovered/Not Resolved]
  - Twin pregnancy [Unknown]
  - Pancreatic carcinoma [Recovering/Resolving]
  - Exposure during pregnancy [Unknown]
  - Insomnia [Unknown]
  - Face presentation [Unknown]

NARRATIVE: CASE EVENT DATE: 201510
